FAERS Safety Report 5472367-7 (Version None)
Quarter: 2007Q3

REPORT INFORMATION
  Report Type: 
  Country: None (occurrence: None)
  Receive Date: 20070930
  Receipt Date: 20070925
  Transmission Date: 20080115
  Serious: Yes (Hospitalization, Other)
  Sender: FDA-Public Use
  Company Number: US-SHR-US-2006-005215

PATIENT
  Age: 36 Year
  Sex: Female

DRUGS (3)
  1. BETASERON [Suspect]
     Indication: RELAPSING-REMITTING MULTIPLE SCLEROSIS
     Dosage: 8 MIU, EVERY 2D
     Route: 058
     Dates: start: 20030508
  2. VICODIN [Concomitant]
     Indication: PAIN
     Dosage: 7.5 MG, UNK
  3. NAPROXEN [Concomitant]
     Indication: PAIN

REACTIONS (7)
  - CHEST DISCOMFORT [None]
  - EXOSTOSIS [None]
  - FALL [None]
  - INTERVERTEBRAL DISC DEGENERATION [None]
  - INTERVERTEBRAL DISC PROTRUSION [None]
  - LOSS OF CONSCIOUSNESS [None]
  - MULTIPLE SCLEROSIS [None]
